FAERS Safety Report 8161452-7 (Version None)
Quarter: 2012Q1

REPORT INFORMATION
  Report Type: 
  Country: None (occurrence: None)
  Receive Date: 20120222
  Receipt Date: 20120222
  Transmission Date: 20120608
  Serious: Yes (Disabling, Other)
  Sender: FDA-Public Use
  Company Number: None

PATIENT
  Sex: Female
  Weight: 77.1115 kg

DRUGS (1)
  1. FOSAMAX [Suspect]
     Indication: OSTEOPENIA
     Dosage: 70 MG 1 WEEKLY 047 BY MOUTH ORAL
     Route: 048
     Dates: start: 20090601, end: 20110601

REACTIONS (2)
  - HYPOTHYROIDISM [None]
  - OSTEOPOROSIS [None]
